FAERS Safety Report 7433026-4 (Version None)
Quarter: 2011Q2

REPORT INFORMATION
  Report Type: 
  Country: None (occurrence: None)
  Receive Date: 20110422
  Receipt Date: 20110419
  Transmission Date: 20111010
  Serious: Yes (Death, Hospitalization, Other)
  Sender: FDA-Public Use
  Company Number: US-AMGEN GMBH-QUU440022

PATIENT
  Age: 75 Year
  Sex: Male
  Weight: 86.7 kg

DRUGS (20)
  1. NPLATE [Suspect]
     Indication: IDIOPATHIC THROMBOCYTOPENIC PURPURA
     Dosage: 850 A?G, QWK
     Route: 058
     Dates: start: 20100505, end: 20100916
  2. ATORVASTATIN CALCIUM [Concomitant]
     Dosage: UNK UNK, UNK
     Route: 048
  3. DEXAMETHASONE [Concomitant]
  4. HYDROCHLOROTHIAZIDE [Concomitant]
  5. OMEPRAZOLE [Concomitant]
  6. LISINOPRIL [Concomitant]
     Dosage: UNK UNK, UNK
     Route: 048
  7. FUROSEMIDE [Concomitant]
  8. PIOGLITAZONE HCL [Concomitant]
     Dosage: UNK UNK, UNK
     Route: 048
  9. POTASSIUM [Concomitant]
  10. CARBOPLATIN [Concomitant]
  11. NPLATE [Suspect]
     Dates: start: 20100505
  12. METFORMIN [Concomitant]
     Dosage: UNK UNK, UNK
     Route: 048
  13. FOLIC ACID [Concomitant]
  14. CYANOCOBALAMIN [Concomitant]
  15. WINRHO [Concomitant]
  16. CORTICOSTEROID NOS [Concomitant]
     Dosage: UNK UNK, UNK
     Dates: start: 20100310
  17. TAMSULOSIN HCL [Concomitant]
  18. RITUXIMAB [Concomitant]
     Dosage: UNK UNK, UNK
     Dates: start: 20100420
  19. ACETYLSALICYLIC ACID SRT [Concomitant]
     Dosage: UNK UNK, UNK
     Route: 048
  20. PEMETREXED [Concomitant]

REACTIONS (9)
  - LUNG CANCER METASTATIC [None]
  - CEREBROVASCULAR ACCIDENT [None]
  - METASTASES TO BONE [None]
  - ANAEMIA [None]
  - PNEUMONITIS [None]
  - DEATH [None]
  - PNEUMONIA [None]
  - PLEURAL EFFUSION [None]
  - MYELODYSPLASTIC SYNDROME [None]
